FAERS Safety Report 9441567 (Version 1)
Quarter: 2013Q3

REPORT INFORMATION
  Report Type: Report from Study
  Country: US (occurrence: US)
  Receive Date: 20130805
  Receipt Date: 20130805
  Transmission Date: 20140515
  Serious: Yes (Other)
  Sender: FDA-Public Use
  Company Number: US-ROCHE-1256308

PATIENT
  Sex: Female
  Weight: 63.56 kg

DRUGS (6)
  1. ACTEMRA [Suspect]
     Indication: RHEUMATOID ARTHRITIS
     Dosage: STARTED AT LOWER DOSE FOR 3 MONTH
     Route: 042
     Dates: start: 201209
  2. ACTEMRA [Suspect]
     Dosage: HIGHER DOSE
     Route: 042
     Dates: start: 201306
  3. ACTEMRA [Suspect]
     Dosage: HIGHER DOSE
     Route: 042
     Dates: start: 201305
  4. ACTEMRA [Suspect]
     Dosage: HIGHER DOSE
     Route: 042
     Dates: start: 201304
  5. ACTEMRA [Suspect]
     Dosage: HIGHER DOSE
     Route: 042
     Dates: start: 201303
  6. METHOTREXATE [Concomitant]
     Indication: RHEUMATOID ARTHRITIS
     Route: 065

REACTIONS (2)
  - Cataract [Not Recovered/Not Resolved]
  - Arthropod bite [Unknown]
